FAERS Safety Report 8509335-4 (Version None)
Quarter: 2012Q3

REPORT INFORMATION
  Report Type: 
  Country: None (occurrence: None)
  Receive Date: 20120713
  Receipt Date: 20120201
  Transmission Date: 20120928
  Serious: Yes (Death)
  Sender: FDA-Public Use
  Company Number: PHHY2012CA059317

PATIENT
  Age: 4 Year
  Sex: Male
  Weight: 27.6 kg

DRUGS (1)
  1. CODEINE SULFATE [Suspect]
     Indication: PROCEDURAL PAIN
     Dosage: 8 MG, UNK

REACTIONS (6)
  - BRONCHOPNEUMONIA [None]
  - RESPIRATORY ARREST [None]
  - SEDATION [None]
  - TOXICITY TO VARIOUS AGENTS [None]
  - ANALGESIC DRUG LEVEL ABOVE THERAPEUTIC [None]
  - LETHARGY [None]
